FAERS Safety Report 5012780-5 (Version None)
Quarter: 2006Q2

REPORT INFORMATION
  Report Type: 
  Country: None (occurrence: None)
  Receive Date: 20060530
  Receipt Date: 20060224
  Transmission Date: 20061013
  Serious: Yes (Life-Threatening, Other)
  Sender: FDA-Public Use
  Company Number: US-BRISTOL-MYERS SQUIBB COMPANY-13296777

PATIENT
  Age: 57 Year
  Sex: Male

DRUGS (5)
  1. ERBITUX [Suspect]
     Indication: COLORECTAL CANCER
     Dosage: DOSE TO BE ADMINISTERED = 800 MG. RECEIVED {15 CC'S.
     Route: 042
     Dates: start: 20060223, end: 20060223
  2. ALBUTEROL SULFATE AUTOHALER [Concomitant]
     Indication: PREMEDICATION
     Dosage: RECEIVED AN ALBUTEROL TREATMENT PRIOR TO CETUXIMAB TREATMENT ONLY.
     Dates: start: 20060223, end: 20060223
  3. BENADRYL [Concomitant]
     Indication: PREMEDICATION
     Dosage: ADMINISTERED 35 MINUTES PRIOR TO CETUXIMAB INFUSION.
     Route: 040
     Dates: start: 20060223
  4. TAGAMET [Concomitant]
     Indication: PREMEDICATION
     Dates: start: 20060223
  5. TYLENOL (GELTAB) [Concomitant]
     Indication: PREMEDICATION
     Dates: start: 20060223

REACTIONS (1)
  - ANAPHYLACTIC REACTION [None]
